FAERS Safety Report 5214101-1 (Version None)
Quarter: 2007Q1

REPORT INFORMATION
  Report Type: 
  Country: None (occurrence: None)
  Receive Date: 20070122
  Receipt Date: 20070112
  Transmission Date: 20070707
  Serious: Yes (Other)
  Sender: FDA-Public Use
  Company Number: ES-AMGEN-UK195159

PATIENT
  Sex: Male

DRUGS (11)
  1. PALIFERMIN [Suspect]
     Indication: MUCOSAL INFLAMMATION
     Route: 042
     Dates: start: 20060905, end: 20060917
  2. DEXAMETHASONE [Concomitant]
     Route: 065
  3. ACYCLOVIR [Concomitant]
     Route: 065
  4. IMIPENEM [Concomitant]
     Route: 065
  5. ITRACONAZOLE [Concomitant]
     Route: 065
  6. METOCLOPROMIDE [Concomitant]
     Route: 065
  7. PARACETAMOL [Concomitant]
     Route: 065
  8. CARMUSTINE [Concomitant]
     Route: 042
     Dates: start: 20060908
  9. MELPHALAN [Concomitant]
     Route: 042
     Dates: start: 20060913
  10. ETOPOSIDE [Concomitant]
     Route: 042
     Dates: start: 20060909, end: 20060912
  11. ARA-C [Concomitant]
     Route: 042
     Dates: start: 20060909, end: 20060912

REACTIONS (1)
  - PULMONARY TOXICITY [None]
